FAERS Safety Report 15616783 (Version 1)
Quarter: 2018Q4

REPORT INFORMATION
  Report Type: Spontaneous
  Country: US (occurrence: US)
  Receive Date: 20181114
  Receipt Date: 20181114
  Transmission Date: 20190205
  Serious: Yes (Hospitalization)
  Sender: FDA-Public Use
  Company Number: PHEH2018US048145

PATIENT
  Age: 65 Year
  Sex: Female

DRUGS (1)
  1. ENTRESTO [Suspect]
     Active Substance: SACUBITRIL\VALSARTAN
     Indication: PRODUCT USED FOR UNKNOWN INDICATION
     Dosage: 0.5 DF, UNK (1/2 OF THE 24/26 MG)
     Route: 065

REACTIONS (3)
  - Hypotension [Recovering/Resolving]
  - Wrong technique in product usage process [Unknown]
  - Incorrect dose administered [Unknown]
